FAERS Safety Report 8182894-X (Version None)
Quarter: 2012Q1

REPORT INFORMATION
  Report Type: 
  Country: None (occurrence: None)
  Receive Date: 20120305
  Receipt Date: 20120222
  Transmission Date: 20120608
  Serious: Yes (Other)
  Sender: FDA-Public Use
  Company Number: ES-BRISTOL-MYERS SQUIBB COMPANY-16415747

PATIENT
  Age: 24 Year
  Sex: Female
  Weight: 74 kg

DRUGS (3)
  1. SERTRALINE HYDROCHLORIDE [Interacting]
     Indication: OBSESSIVE-COMPULSIVE DISORDER
     Dosage: OCT2010-03MAY2011 100MG DOSE REDUCED TO 50MG/D FROM 05MAR11-AUG11
     Route: 048
     Dates: start: 20101001, end: 20110801
  2. ALPRAZOLAM [Interacting]
     Indication: ANXIETY
     Route: 048
     Dates: start: 20101001, end: 20110701
  3. ABILIFY [Suspect]
     Indication: OBSESSIVE-COMPULSIVE DISORDER
     Dosage: 22MAR11-29MAR11 2.5 MG FROM 29-MAR-2011 5 MG.
     Route: 048
     Dates: start: 20110522

REACTIONS (2)
  - DRUG INTERACTION [None]
  - ABNORMAL WEIGHT GAIN [None]
